FAERS Safety Report 8570749-8 (Version None)
Quarter: 2012Q3

REPORT INFORMATION
  Report Type: 
  Country: None (occurrence: None)
  Receive Date: 20120805
  Receipt Date: 20120727
  Transmission Date: 20120928
  Serious: No
  Sender: FDA-Public Use
  Company Number: US-009507513-1207USA012270

PATIENT

DRUGS (7)
  1. ROPINIROLE [Concomitant]
  2. PRINZIDE [Suspect]
     Route: 048
  3. SYMBICORT [Suspect]
     Dosage: 160/4.5 MCG, TWO PUFFS
     Route: 055
  4. LORATADINE [Concomitant]
  5. LEVOTHYROXINE SODIUM [Concomitant]
  6. PRAVASTATIN SODIUM [Concomitant]
  7. CYMBALTA [Concomitant]

REACTIONS (3)
  - DYSPNOEA [None]
  - DIZZINESS [None]
  - FEELING DRUNK [None]
